FAERS Safety Report 19196160 (Version 1)
Quarter: 2021Q2

REPORT INFORMATION
  Report Type: Spontaneous
  Country: CN (occurrence: CN)
  Receive Date: 20210429
  Receipt Date: 20210429
  Transmission Date: 20210717
  Serious: Yes (Hospitalization, Other)
  Sender: FDA-Public Use
  Company Number: CN-FRESENIUS KABI-FK202104239

PATIENT
  Age: 5 Year
  Sex: Male
  Weight: 20 kg

DRUGS (6)
  1. INTRALIPID [Suspect]
     Active Substance: EGG PHOSPHOLIPIDS\GLYCERIN\SOYBEAN OIL
     Indication: MENINGITIS
     Dosage: FORM OF ADMIN. WAS REPORTED AS INJECTION IN THE SOURCE. UNIT DOSE WAS REPORTED AS 50 ML IN STRUCTURE
     Route: 041
     Dates: start: 20210312, end: 20210312
  2. ERGOCALCIFEROL/RETINOL/PHYTOMENADIONE/VITAMIN E NOS [Suspect]
     Active Substance: ERGOCALCIFEROL\PHYTONADIONE\RETINOL\TOCOPHEROL
     Indication: HYDROCEPHALUS
  3. INTRALIPID [Suspect]
     Active Substance: EGG PHOSPHOLIPIDS\GLYCERIN\SOYBEAN OIL
     Indication: HYDROCEPHALUS
  4. PYRIDOXINE HYDROCHLORIDE/THIAMINE HYDROCHLORIDE/RIBOFLAVIN/NICOTINAMIDE [Suspect]
     Active Substance: NIACINAMIDE\PYRIDOXINE HYDROCHLORIDE\RIBOFLAVIN\THIAMINE HYDROCHLORIDE
     Indication: HYDROCEPHALUS
  5. ERGOCALCIFEROL/RETINOL/PHYTOMENADIONE/VITAMIN E NOS [Suspect]
     Active Substance: ERGOCALCIFEROL\PHYTONADIONE\RETINOL\TOCOPHEROL
     Indication: MENINGITIS
     Dosage: DOSAGE UNIT WAS REPORTED AS PCS.
     Route: 041
     Dates: start: 20210312, end: 20210312
  6. PYRIDOXINE HYDROCHLORIDE/THIAMINE HYDROCHLORIDE/RIBOFLAVIN/NICOTINAMIDE [Suspect]
     Active Substance: NIACINAMIDE\PYRIDOXINE HYDROCHLORIDE\RIBOFLAVIN\THIAMINE HYDROCHLORIDE
     Indication: MENINGITIS
     Route: 041
     Dates: start: 20210312, end: 20210312

REACTIONS (1)
  - Anaphylactic shock [Recovering/Resolving]

NARRATIVE: CASE EVENT DATE: 20210312
